FAERS Safety Report 15795013 (Version 1)
Quarter: 2019Q1

REPORT INFORMATION
  Report Type: Spontaneous
  Country: US (occurrence: US)
  Receive Date: 20190107
  Receipt Date: 20190107
  Transmission Date: 20190417
  Serious: Yes (Other)
  Sender: FDA-Public Use
  Company Number: None

PATIENT
  Age: 7 Year
  Sex: Female
  Weight: 22.41 kg

DRUGS (2)
  1. MULTIVITAL [Concomitant]
  2. METHOTREXATE. [Suspect]
     Active Substance: METHOTREXATE
     Indication: SYSTEMIC SCLERODERMA
     Dosage: ?          OTHER FREQUENCY:WEEKLY;?
     Route: 058
     Dates: start: 20180110, end: 20190107

REACTIONS (2)
  - Laboratory test abnormal [None]
  - Therapy cessation [None]

NARRATIVE: CASE EVENT DATE: 20190107
